FAERS Safety Report 24187487 (Version 2)
Quarter: 2025Q2

REPORT INFORMATION
  Report Type: Spontaneous
  Country: GB (occurrence: GB)
  Receive Date: 20240808
  Receipt Date: 20250408
  Transmission Date: 20250716
  Serious: Yes (Hospitalization, Other)
  Sender: RANBAXY
  Company Number: GB-MHRA-MIDB-e0b5ce38-9eb4-43b8-b914-130074223b8e

PATIENT
  Age: 89 Year
  Sex: Male

DRUGS (14)
  1. SERTRALINE [Suspect]
     Active Substance: SERTRALINE HYDROCHLORIDE
     Indication: Product used for unknown indication
     Dosage: 50 MG TABLETS ONE TO BE TAKEN EACH DAY IN THE MORNING
     Route: 065
  2. DOCUSATE [Concomitant]
     Active Substance: DOCUSATE
     Indication: Product used for unknown indication
     Route: 065
  3. AMITRIPTYLINE [Concomitant]
     Active Substance: AMITRIPTYLINE
     Indication: Product used for unknown indication
     Dosage: 10 MG TABLETS ONE TO BE TAKEN AT NIGHT
     Route: 065
  4. NITROFURANTOIN [Concomitant]
     Active Substance: NITROFURANTOIN
     Indication: Product used for unknown indication
     Dosage: 100 MG MODIFIED - RELEASE CAPSULES ONE TO BE TAKEN TWICE A DAY
     Route: 065
  5. LEVOTHYROXINE [Concomitant]
     Active Substance: LEVOTHYROXINE
     Indication: Product used for unknown indication
     Route: 065
     Dates: end: 20240606
  6. LEVOTHYROXINE [Concomitant]
     Active Substance: LEVOTHYROXINE
     Route: 065
  7. LEVEMIR [Concomitant]
     Active Substance: INSULIN DETEMIR
     Indication: Product used for unknown indication
     Route: 065
  8. FOLIC ACID [Concomitant]
     Active Substance: FOLIC ACID
     Indication: Product used for unknown indication
     Dosage: 5 MG TABLETS ONE TO BE TAKEN EACH DAY
     Route: 065
  9. SENNA [Concomitant]
     Active Substance: SENNOSIDES
     Indication: Product used for unknown indication
     Dosage: 7.5 MG TABLETS TWO TO BE TAKEN AT NIGHT
     Route: 065
  10. TAMSULOSIN [Concomitant]
     Active Substance: TAMSULOSIN
     Indication: Product used for unknown indication
     Dosage: 400 MICROGRAM MODIFIED - RELEASE CAPSULES ONE TO BE TAKEN DAILY
     Route: 065
  11. e45 itch relief cream [Concomitant]
     Indication: Product used for unknown indication
     Route: 065
  12. LINAGLIPTIN [Concomitant]
     Active Substance: LINAGLIPTIN
     Indication: Product used for unknown indication
     Dosage: 5 MG TABLETS ONE TO BE TAKEN EACH DAY
     Route: 065
  13. APIXABAN [Concomitant]
     Active Substance: APIXABAN
     Indication: Product used for unknown indication
     Dosage: 5 MG TABLETS ONE TO BE TAKEN TWICE A DAY [STOPPED INDEFINATELY - MASSIVE GI BLEED]
     Route: 065
  14. FERROUS SULFATE [Concomitant]
     Active Substance: FERROUS SULFATE
     Indication: Product used for unknown indication
     Dosage: 200 MG TABLETS ONE TO BE TAKEN EACH DAY
     Route: 065

REACTIONS (1)
  - Gastrointestinal haemorrhage [Recovered/Resolved]
